FAERS Safety Report 24243275 (Version 1)
Quarter: 2024Q3

REPORT INFORMATION
  Report Type: Spontaneous
  Country: US (occurrence: US)
  Receive Date: 20240823
  Receipt Date: 20240823
  Transmission Date: 20241016
  Serious: Yes (Life-Threatening, Hospitalization, Other)
  Sender: QUAGEN PHARMACEUTICALS
  Company Number: US-QUAGEN-2024QUALIT00243

PATIENT
  Age: 43 Year
  Sex: Female

DRUGS (3)
  1. OXYCODONE HYDROCHLORIDE [Suspect]
     Active Substance: OXYCODONE HYDROCHLORIDE
     Indication: Back pain
     Route: 065
  2. MORPHINE [Suspect]
     Active Substance: MORPHINE
     Indication: Back pain
     Route: 065
  3. MONTELUKAST SODIUM [Concomitant]
     Active Substance: MONTELUKAST\MONTELUKAST SODIUM
     Indication: Asthma
     Route: 065

REACTIONS (4)
  - Respiratory failure [Unknown]
  - Asthma [Unknown]
  - Respiratory acidosis [Unknown]
  - Contraindicated product administered [Unknown]
